FAERS Safety Report 18940510 (Version 1)
Quarter: 2021Q1

REPORT INFORMATION
  Report Type: Spontaneous
  Country: GE (occurrence: GE)
  Receive Date: 20210225
  Receipt Date: 20210225
  Transmission Date: 20210420
  Serious: Yes (Death)
  Sender: FDA-Public Use
  Company Number: NVSC2021GE042948

PATIENT
  Sex: Female

DRUGS (1)
  1. GLIVEC [Suspect]
     Active Substance: IMATINIB MESYLATE
     Indication: GASTROINTESTINAL STROMAL TUMOUR
     Dosage: 800 MG (8 X 100 MG)
     Route: 065

REACTIONS (3)
  - Malignant neoplasm progression [Fatal]
  - Gastrointestinal stromal tumour [Fatal]
  - Ill-defined disorder [Fatal]
